FAERS Safety Report 18120325 (Version 1)
Quarter: 2020Q3

REPORT INFORMATION
  Report Type: Spontaneous
  Country: US (occurrence: US)
  Receive Date: 20200806
  Receipt Date: 20200806
  Transmission Date: 20201103
  Serious: No
  Sender: FDA-Public Use
  Company Number: US-PFIZER INC-2020296041

PATIENT
  Age: 6 Year
  Sex: Female

DRUGS (2)
  1. METHOTREXATE SODIUM. [Suspect]
     Active Substance: METHOTREXATE SODIUM
     Indication: JUVENILE IDIOPATHIC ARTHRITIS
     Dosage: UNK, WEEKLY
  2. INDOCIN [Concomitant]
     Active Substance: INDOMETHACIN
     Dosage: UNK, 2X/DAY

REACTIONS (4)
  - Off label use [Unknown]
  - Product use issue [Unknown]
  - Abdominal discomfort [Unknown]
  - Fatigue [Unknown]
